FAERS Safety Report 11811450 (Version 6)
Quarter: 2017Q1

REPORT INFORMATION
  Report Type: Spontaneous
  Country: US (occurrence: US)
  Receive Date: 20151208
  Receipt Date: 20170323
  Transmission Date: 20170428
  Serious: Yes (Hospitalization)
  Sender: FDA-Public Use
  Company Number: US-PFIZER INC-2015428053

PATIENT
  Age: 69 Year
  Sex: Female
  Weight: 60 kg

DRUGS (3)
  1. CELEBREX [Suspect]
     Active Substance: CELECOXIB
     Indication: ARTHRITIS
     Dosage: 200 MG, 1X/DAY
     Route: 048
     Dates: end: 201611
  2. MAGNESIUM [Concomitant]
     Active Substance: MAGNESIUM
     Indication: MUSCLE RELAXANT THERAPY
     Dosage: AT NIGHT
  3. DETROL LA [Suspect]
     Active Substance: TOLTERODINE TARTRATE
     Indication: DYSURIA
     Dosage: 1 DF 4 MG , 1X/DAY (AT NIGHT)
     Route: 048
     Dates: end: 201611

REACTIONS (6)
  - Nasopharyngitis [Recovered/Resolved]
  - Upper respiratory tract congestion [Recovered/Resolved]
  - Asthenia [Recovered/Resolved]
  - Intentional product misuse [Not Recovered/Not Resolved]
  - Gastroenteritis bacterial [Recovered/Resolved]
  - Intestinal obstruction [Recovered/Resolved]

NARRATIVE: CASE EVENT DATE: 2016
